FAERS Safety Report 5842279-5 (Version None)
Quarter: 2008Q3

REPORT INFORMATION
  Report Type: 
  Country: None (occurrence: None)
  Receive Date: 20080731
  Receipt Date: 20080625
  Transmission Date: 20090109
  Serious: No
  Sender: FDA-Public Use
  Company Number: US200806005960

PATIENT
  Age: 38 Year
  Sex: Female
  Weight: 88 kg

DRUGS (7)
  1. BYETTA [Suspect]
     Indication: TYPE 2 DIABETES MELLITUS
     Dosage: 5 UG, 2/D, SUBCUTANEOUS
     Route: 058
     Dates: start: 20080624
  2. SEROQUEL [Concomitant]
  3. TRILEPTIN (OXCARBAZEPINE) [Concomitant]
  4. ZYRTEC [Concomitant]
  5. LOTREL [Concomitant]
  6. PROVIGIL [Concomitant]
  7. HYZAAR [Concomitant]

REACTIONS (1)
  - MUSCULOSKELETAL DISCOMFORT [None]
